FAERS Safety Report 18348938 (Version 3)
Quarter: 2020Q4

REPORT INFORMATION
  Report Type: Other
  Country: CA (occurrence: CA)
  Receive Date: 20201006
  Receipt Date: 20201110
  Transmission Date: 20210114
  Serious: Yes (Other)
  Sender: FDA-Public Use
  Company Number: CA-AA PHARMA INC.-2020AP018987

PATIENT
  Age: 38 Year
  Sex: Male

DRUGS (4)
  1. ISOPTO ATROPINE [Concomitant]
     Active Substance: ATROPINE SULFATE
     Indication: PRODUCT USED FOR UNKNOWN INDICATION
     Dosage: 1 GTT DROPS, AS REQUIRED
     Route: 060
  2. AA-CLOZAPINE [Suspect]
     Active Substance: CLOZAPINE
     Indication: PRODUCT USED FOR UNKNOWN INDICATION
     Dosage: 4.5 DOSAGE FORM, Q.H.S.
     Route: 048
     Dates: end: 20201013
  3. FLUANXOL DEPOT [Concomitant]
     Active Substance: FLUPENTIXOL DECANOATE
     Indication: PRODUCT USED FOR UNKNOWN INDICATION
     Dosage: 30 MILLIGRAM, EVERY 4 WEEK
     Route: 030
  4. APO-VALPROIC [Suspect]
     Active Substance: VALPROIC ACID
     Indication: PRODUCT USED FOR UNKNOWN INDICATION
     Dosage: 3 DOSAGE FORM, Q.H.S.
     Route: 048

REACTIONS (13)
  - Electrocardiogram QRS complex prolonged [Unknown]
  - Bundle branch block left [Unknown]
  - Left ventricular dysfunction [Unknown]
  - Drug level decreased [Unknown]
  - Sinus tachycardia [Unknown]
  - Cardiomyopathy [Unknown]
  - Brain natriuretic peptide increased [Unknown]
  - Electrocardiogram repolarisation abnormality [Unknown]
  - Cardiac failure congestive [Unknown]
  - Electrocardiogram abnormal [Unknown]
  - Left ventricular hypertrophy [Unknown]
  - Ejection fraction decreased [Unknown]
  - Myocarditis [Unknown]

NARRATIVE: CASE EVENT DATE: 20200914
